FAERS Safety Report 7514112-7 (Version None)
Quarter: 2011Q2

REPORT INFORMATION
  Report Type: 
  Country: None (occurrence: None)
  Receive Date: 20110531
  Receipt Date: 20101104
  Transmission Date: 20111010
  Serious: No
  Sender: FDA-Public Use
  Company Number: US-BAYER-201040583NA

PATIENT
  Sex: Female

DRUGS (1)
  1. AVELOX [Suspect]
     Indication: TONSILLITIS BACTERIAL
     Route: 048

REACTIONS (3)
  - NAUSEA [None]
  - VOMITING [None]
  - DIZZINESS [None]
